FAERS Safety Report 6581627-8 (Version None)
Quarter: 2010Q1

REPORT INFORMATION
  Report Type: 
  Country: None (occurrence: None)
  Receive Date: 20100211
  Receipt Date: 20100211
  Transmission Date: 20100710
  Serious: Yes (Other)
  Sender: FDA-Public Use
  Company Number: None

PATIENT

DRUGS (1)
  1. VIVELLE-DOT [Suspect]
     Indication: HORMONE LEVEL ABNORMAL
     Dosage: 0.05MG TWICE WEEKLY TRANSDERMAL
     Route: 062
     Dates: start: 20040101, end: 20100204

REACTIONS (3)
  - DEVICE FAILURE [None]
  - DRUG EFFECT DECREASED [None]
  - PRODUCT QUALITY ISSUE [None]
